FAERS Safety Report 8967225 (Version 2)
Quarter: 2012Q4

REPORT INFORMATION
  Report Type: Report from Study
  Country: CA (occurrence: CA)
  Receive Date: 20121217
  Receipt Date: 20121228
  Transmission Date: 20130627
  Serious: Yes (Hospitalization)
  Sender: FDA-Public Use
  Company Number: CA-JNJFOC-20121202998

PATIENT
  Age: 24 Year
  Sex: Male
  Weight: 88 kg

DRUGS (5)
  1. REMICADE [Suspect]
     Indication: CROHN^S DISEASE
     Route: 042
     Dates: start: 20120628
  2. MELATONIN [Concomitant]
     Route: 065
  3. RISPERIDONE [Concomitant]
     Route: 065
  4. ALL OTHER THERAPEUTICS [Concomitant]
     Route: 065
  5. LORAZEPAM [Concomitant]
     Route: 065

REACTIONS (1)
  - Mental disorder [Recovered/Resolved]
